FAERS Safety Report 19836414 (Version 1)
Quarter: 2021Q3

REPORT INFORMATION
  Report Type: Spontaneous
  Country: US (occurrence: US)
  Receive Date: 20210915
  Receipt Date: 20210915
  Transmission Date: 20211014
  Serious: No
  Sender: FDA-Public Use
  Company Number: US-BIOHAVEN PHARMACEUTICALS-2021BHV00963

PATIENT
  Age: 58 Year
  Sex: Male

DRUGS (5)
  1. UNSPECIFIED BUNCH OF OTHER DRUGS [Concomitant]
  2. OXYCODONE [Concomitant]
     Active Substance: OXYCODONE
  3. NURTEC ODT [Suspect]
     Active Substance: RIMEGEPANT SULFATE
     Dosage: UNK
     Dates: start: 20210802
  4. ZOLOFT [Concomitant]
     Active Substance: SERTRALINE HYDROCHLORIDE
  5. UNSPECIFIED OTHER ANTIDEPRESSANTS [Concomitant]
     Dosage: UNK

REACTIONS (1)
  - Dyspnoea [Unknown]

NARRATIVE: CASE EVENT DATE: 202108
